FAERS Safety Report 19057297 (Version 3)
Quarter: 2021Q2

REPORT INFORMATION
  Report Type: Spontaneous
  Country: JP (occurrence: JP)
  Receive Date: 20210325
  Receipt Date: 20210422
  Transmission Date: 20210717
  Serious: No
  Sender: FDA-Public Use
  Company Number: JP-JNJFOC-20210314621

PATIENT
  Age: 72 Year
  Sex: Male

DRUGS (1)
  1. SIMPONI [Suspect]
     Active Substance: GOLIMUMAB
     Indication: RHEUMATOID ARTHRITIS
     Dosage: 50.00 MG/0.50 ML
     Route: 058
     Dates: start: 20210304, end: 20210304

REACTIONS (4)
  - Device deployment issue [Unknown]
  - Injury associated with device [Recovered/Resolved]
  - Needle issue [Unknown]
  - Administration site pain [Recovered/Resolved]

NARRATIVE: CASE EVENT DATE: 20210304
